FAERS Safety Report 5368067-4 (Version None)
Quarter: 2007Q2

REPORT INFORMATION
  Report Type: 
  Country: None (occurrence: None)
  Receive Date: 20070622
  Receipt Date: 20070613
  Transmission Date: 20071010
  Serious: Yes (Other)
  Sender: FDA-Public Use
  Company Number: BR-PFIZER INC-2007049228

PATIENT
  Sex: Male
  Weight: 71 kg

DRUGS (3)
  1. FRONTAL [Suspect]
     Indication: ANXIETY
     Route: 048
  2. CLOBAZAM [Suspect]
     Indication: ANXIETY
  3. ALPRAZOLAM [Suspect]
     Indication: ANXIETY

REACTIONS (11)
  - ANXIETY [None]
  - DIZZINESS [None]
  - DRUG DEPENDENCE [None]
  - DRUG INEFFECTIVE [None]
  - GASTRITIS [None]
  - HEADACHE [None]
  - LIVER DISORDER [None]
  - NAUSEA [None]
  - OESOPHAGITIS [None]
  - OSTEOARTHRITIS [None]
  - PHARYNGOLARYNGEAL PAIN [None]
